FAERS Safety Report 9602423 (Version 1)
Quarter: 2013Q4

REPORT INFORMATION
  Report Type: Spontaneous
  Country: US (occurrence: US)
  Receive Date: 20131007
  Receipt Date: 20131007
  Transmission Date: 20140711
  Serious: Yes (Other)
  Sender: FDA-Public Use
  Company Number: US-PFIZER INC-2013286651

PATIENT
  Age: 63 Year
  Sex: Female
  Weight: 72.56 kg

DRUGS (6)
  1. CHANTIX [Suspect]
     Indication: SMOKING CESSATION THERAPY
     Dosage: 0.5 MG, UNK
     Dates: start: 2013, end: 2013
  2. CYMBALTA [Concomitant]
     Indication: DEPRESSION
     Dosage: 60 MG, DAILY
  3. CYMBALTA [Concomitant]
     Indication: BIPOLAR DISORDER
  4. RITALIN [Concomitant]
     Indication: ATTENTION DEFICIT/HYPERACTIVITY DISORDER
     Dosage: UNK
  5. OMEPRAZOLE [Concomitant]
     Dosage: UNK
  6. KLONOPIN [Concomitant]
     Dosage: UNK

REACTIONS (2)
  - Bronchopneumonia [Not Recovered/Not Resolved]
  - Bronchitis [Not Recovered/Not Resolved]
